FAERS Safety Report 5443784-6 (Version None)
Quarter: 2007Q3

REPORT INFORMATION
  Report Type: 
  Country: None (occurrence: None)
  Receive Date: 20070905
  Receipt Date: 20070824
  Transmission Date: 20080115
  Serious: Yes (Disabling)
  Sender: FDA-Public Use
  Company Number: FR-PFIZER INC-2007053400

PATIENT
  Sex: Female
  Weight: 60 kg

DRUGS (8)
  1. CHAMPIX [Suspect]
     Indication: SMOKING CESSATION THERAPY
     Route: 048
     Dates: start: 20070501, end: 20070524
  2. LORAZEPAM [Concomitant]
  3. HAVLANE [Concomitant]
  4. METEOXANE [Concomitant]
  5. HOMEOPATHIC PREPARATION [Concomitant]
  6. TRIMEBUTINE MALEATE [Concomitant]
  7. AMOXICILLIN [Concomitant]
  8. TROXERUTIN [Concomitant]

REACTIONS (6)
  - ABDOMINAL PAIN [None]
  - BACK PAIN [None]
  - DYSPHONIA [None]
  - HEADACHE [None]
  - MUSCLE SPASMS [None]
  - PHARYNGOLARYNGEAL PAIN [None]
